FAERS Safety Report 9157502 (Version 1)
Quarter: 2013Q1

REPORT INFORMATION
  Report Type: Spontaneous
  Country: US (occurrence: None)
  Receive Date: 20130311
  Receipt Date: 20130311
  Transmission Date: 20140127
  Serious: No
  Sender: FDA-Public Use
  Company Number: None

PATIENT
  Sex: Male

DRUGS (1)
  1. TRAMADOL 50MG GENERIC [Suspect]
     Indication: PAIN
     Route: 048
     Dates: start: 2010

REACTIONS (1)
  - Drug ineffective [None]
